FAERS Safety Report 11273261 (Version 1)
Quarter: 2015Q3

REPORT INFORMATION
  Report Type: Report from Study
  Country: BE (occurrence: BE)
  Receive Date: 20150715
  Receipt Date: 20150715
  Transmission Date: 20151125
  Serious: Yes (Hospitalization)
  Sender: FDA-Public Use
  Company Number: BE-ABBVIE-13P-013-1177253-00

PATIENT
  Age: 72 Year
  Sex: Male

DRUGS (13)
  1. DUODOPA [Suspect]
     Active Substance: CARBIDOPA\LEVODOPA
     Dosage: AM = 7.5 ML, CONTIN DOSE = 4 ML/H DURING 16H, EXTRA DOSE = 3.5ML
     Route: 050
     Dates: start: 20140110, end: 20140613
  2. DUODOPA [Suspect]
     Active Substance: CARBIDOPA\LEVODOPA
     Dosage: AM = 7.5 ML, CD = 3 ML/H DURING 16H, ED = 2 ML
     Route: 050
     Dates: start: 20140930, end: 20141013
  3. DUODOPA [Suspect]
     Active Substance: CARBIDOPA\LEVODOPA
     Dosage: AM = 6.5 ML, CD = 2.8 ML/H DURING 16H, ED = 2 ML
     Route: 050
     Dates: start: 20150324, end: 20150709
  4. DUODOPA [Suspect]
     Active Substance: CARBIDOPA\LEVODOPA
     Dosage: AM DOSE: 6ML, CONTINUE DOSE: 4.8ML/HR FOR 16HRS, EXTRA DOSE:4ML
     Route: 050
     Dates: start: 20131216, end: 20131226
  5. DUODOPA [Suspect]
     Active Substance: CARBIDOPA\LEVODOPA
     Dosage: AM DOSE: 7.5ML; CD: 3.5ML/H FOR 16 HRS; ED: 3 ML
     Route: 050
     Dates: start: 20140728, end: 20140812
  6. DUODOPA [Suspect]
     Active Substance: CARBIDOPA\LEVODOPA
     Dosage: AM DOSE: 7.5ML; CD: 3.2ML/H FOR 16 HRS; ED: 2ML
     Route: 050
     Dates: start: 20140812, end: 20140930
  7. DUODOPA [Suspect]
     Active Substance: CARBIDOPA\LEVODOPA
     Dosage: UNKNOW- CD ADAPTED
     Route: 050
     Dates: start: 20150709
  8. DUODOPA [Suspect]
     Active Substance: CARBIDOPA\LEVODOPA
     Indication: PARKINSON^S DISEASE
     Dosage: UNKNOWN
     Route: 050
     Dates: start: 20131005, end: 20131216
  9. DUODOPA [Suspect]
     Active Substance: CARBIDOPA\LEVODOPA
     Dosage: AM = 7.5 ML, CONTIN DOSE = 3.9 ML/H DURING 16H, EXTRA DOSE =3.5 ML
     Route: 050
     Dates: start: 20140617, end: 20140728
  10. DUODOPA [Suspect]
     Active Substance: CARBIDOPA\LEVODOPA
     Dosage: AM = 7.5 ML, CD = 2.8 ML/H DURING 16H, ED = 2 ML
     Route: 050
     Dates: start: 20141013, end: 20150324
  11. DUODOPA [Suspect]
     Active Substance: CARBIDOPA\LEVODOPA
     Dosage: AM = 6.5 ML, CD = 2.8 ML/H DURING 16H, ED = 2 ML
     Route: 050
     Dates: start: 20150324, end: 20150709
  12. DUODOPA [Suspect]
     Active Substance: CARBIDOPA\LEVODOPA
     Dosage: AM DOSE: 7.5ML; CONTIN. DOSE: 4.3ML/H DURING 16HRS; EXTRA DOSE: 4ML
     Route: 050
     Dates: start: 20140102, end: 20140110
  13. DUODOPA [Suspect]
     Active Substance: CARBIDOPA\LEVODOPA
     Dosage: AM DOSE: 7.5ML; CONTIN. DOSE: 4.5ML/H DURING 16HRS; EXTRA DOSE: 4ML
     Route: 050
     Dates: start: 20131226, end: 20140102

REACTIONS (8)
  - Drug ineffective [Unknown]
  - Device dislocation [Recovered/Resolved]
  - Orthostatic hypotension [Not Recovered/Not Resolved]
  - Hypotension [Recovered/Resolved]
  - Dyskinesia [Unknown]
  - Fall [Unknown]
  - Asthenia [Unknown]
  - On and off phenomenon [Unknown]

NARRATIVE: CASE EVENT DATE: 201312
